FAERS Safety Report 20956005 (Version 3)
Quarter: 2024Q2

REPORT INFORMATION
  Report Type: Spontaneous
  Country: US (occurrence: None)
  Receive Date: 20220614
  Receipt Date: 20240613
  Transmission Date: 20240716
  Serious: No
  Sender: FDA-Public Use
  Company Number: US-MDD US Operations-MDD202111-002281

PATIENT
  Age: 77 Year
  Sex: Female

DRUGS (1)
  1. APOKYN [Suspect]
     Active Substance: APOMORPHINE HYDROCHLORIDE
     Indication: Product used for unknown indication
     Dosage: 30MG/3ML
     Route: 058
     Dates: start: 2021

REACTIONS (2)
  - Therapeutic product effect delayed [Unknown]
  - Device defective [Unknown]

NARRATIVE: CASE EVENT DATE: 20211105
